FAERS Safety Report 5227753-7 (Version None)
Quarter: 2007Q1

REPORT INFORMATION
  Report Type: 
  Country: None (occurrence: None)
  Receive Date: 20070202
  Receipt Date: 20070131
  Transmission Date: 20070707
  Serious: Yes (Disabling)
  Sender: FDA-Public Use
  Company Number: US-MERCK-0612USA03709

PATIENT
  Age: 49 Year
  Sex: Female
  Weight: 95 kg

DRUGS (9)
  1. ZETIA [Suspect]
     Indication: BLOOD CHOLESTEROL INCREASED
     Route: 048
     Dates: start: 20040101, end: 20061107
  2. LOPID [Concomitant]
     Indication: BLOOD CHOLESTEROL INCREASED
     Route: 048
     Dates: end: 20061107
  3. VICODIN [Concomitant]
     Indication: PAIN
     Route: 048
  4. PROTONIX [Concomitant]
     Indication: GASTROOESOPHAGEAL REFLUX DISEASE
     Route: 048
  5. WELLBUTRIN [Concomitant]
     Route: 065
  6. LOTENSIN [Concomitant]
     Route: 065
  7. PREMARIN [Concomitant]
     Route: 065
  8. COREG [Concomitant]
     Route: 065
  9. SINEMET [Concomitant]
     Route: 048

REACTIONS (2)
  - ASTHENIA [None]
  - MYALGIA [None]
